FAERS Safety Report 12419715 (Version 2)
Quarter: 2016Q2

REPORT INFORMATION
  Report Type: Spontaneous
  Country: JP (occurrence: JP)
  Receive Date: 20160531
  Receipt Date: 20160620
  Transmission Date: 20160815
  Serious: Yes (Other)
  Sender: FDA-Public Use
  Company Number: JP-GLAXOSMITHKLINE-JP2016JPN073849

PATIENT
  Age: 10 Year
  Sex: Male
  Weight: 31 kg

DRUGS (3)
  1. MYSTAN [Concomitant]
     Active Substance: CLOBAZAM
     Dosage: 0.15 G, BID
  2. LAMICTAL [Suspect]
     Active Substance: LAMOTRIGINE
     Indication: EPILEPSY
     Dosage: 2 MG, BID
     Route: 048
     Dates: start: 20160404, end: 20160411
  3. DEPAKENE [Concomitant]
     Active Substance: VALPROIC ACID
     Dosage: 200 MG, BID

REACTIONS (2)
  - Haematochezia [Recovered/Resolved]
  - Stomatitis [Recovered/Resolved]

NARRATIVE: CASE EVENT DATE: 20160405
